FAERS Safety Report 15733584 (Version 1)
Quarter: 2018Q4

REPORT INFORMATION
  Report Type: Spontaneous
  Country: FR (occurrence: FR)
  Receive Date: 20181218
  Receipt Date: 20181218
  Transmission Date: 20190205
  Serious: Yes (Other)
  Sender: FDA-Public Use
  Company Number: FR-TEVA-2018-FR-986839

PATIENT
  Age: 37 Year
  Sex: Female

DRUGS (11)
  1. LOXAPAC (LOXAPINE) [Suspect]
     Active Substance: LOXAPINE
     Indication: SCHIZOPHRENIA
     Dosage: 100 MILLIGRAM DAILY;
     Route: 048
     Dates: start: 20181025
  2. LAROXYL 50 MG, COMPRIM? PELLICUL? [Suspect]
     Active Substance: AMITRIPTYLINE HYDROCHLORIDE
     Indication: DEPRESSION
     Dosage: 200 MILLIGRAM DAILY;
     Route: 048
     Dates: start: 20180913
  3. URBANYL 5 MG, G?LULE [Suspect]
     Active Substance: CLOBAZAM
     Indication: ANXIETY
     Dosage: 15 MILLIGRAM DAILY;
     Route: 048
     Dates: start: 20181015
  4. LORAZEPAM. [Suspect]
     Active Substance: LORAZEPAM
     Indication: ANXIETY
     Dosage: 2 MILLIGRAM DAILY;
     Route: 048
     Dates: start: 20181107
  5. METFORMIN [Suspect]
     Active Substance: METFORMIN HYDROCHLORIDE
     Indication: DIABETES MELLITUS
     Dosage: 1000 MILLIGRAM DAILY;
     Route: 048
     Dates: start: 20180913
  6. PARKINANE L P 5 MG, G?LULE ? LIB?RATION PROLONG?E [Suspect]
     Active Substance: TRIHEXYPHENIDYL HYDROCHLORIDE
     Indication: TREMOR
     Dosage: 10 MILLIGRAM DAILY;
     Route: 048
     Dates: start: 20180913
  7. CLOZAPINE. [Suspect]
     Active Substance: CLOZAPINE
     Indication: SCHIZOPHRENIA
     Dosage: 400 MILLIGRAM DAILY;
     Route: 048
     Dates: start: 20180913
  8. ATROPINE ALCON 1 POUR CENT, COLLYRE [Suspect]
     Active Substance: ATROPINE
     Indication: SALIVARY HYPERSECRETION
     Dosage: 6 DOSAGE FORMS DAILY;
     Route: 060
     Dates: start: 20180921
  9. LEVOTHYROX 50 MICROGRAMMES, COMPRIM? S?CABLE [Suspect]
     Active Substance: LEVOTHYROXINE SODIUM
     Indication: HYPOTHYROIDISM
     Dosage: 50 MICROGRAM DAILY;
     Route: 048
     Dates: start: 20180913
  10. HALDOL [Suspect]
     Active Substance: HALOPERIDOL
     Indication: SCHIZOPHRENIA
     Dosage: 10 MILLIGRAM DAILY;
     Route: 048
     Dates: start: 20180913
  11. LOXAPAC 50 MG, COMPRIM? PELLICUL? [Suspect]
     Active Substance: LOXAPINE SUCCINATE
     Indication: SCHIZOPHRENIA
     Dosage: 200 MILLIGRAM DAILY;
     Route: 048
     Dates: start: 20181107

REACTIONS (1)
  - Urinary retention [Recovered/Resolved]

NARRATIVE: CASE EVENT DATE: 20181112
